FAERS Safety Report 12104692 (Version 2)
Quarter: 2020Q2

REPORT INFORMATION
  Report Type: Spontaneous
  Country: CA (occurrence: CA)
  Receive Date: 20160223
  Receipt Date: 20200618
  Transmission Date: 20200713
  Serious: Yes (Other)
  Sender: FDA-Public Use
  Company Number: CA-009507513-1602CAN009360

PATIENT
  Age: 63 Year
  Sex: Female
  Weight: 69.5 kg

DRUGS (13)
  1. FUROSEMIDE. [Concomitant]
     Active Substance: FUROSEMIDE
     Dosage: 40MG DAILY AT BREAKFAST
     Route: 048
  2. INVANZ [Suspect]
     Active Substance: ERTAPENEM SODIUM
     Indication: SEPSIS
     Dosage: 1.0 GRAM, 1 EVERY 1 DAY
     Route: 042
     Dates: start: 20150622, end: 20150625
  3. CEFAZOLIN SODIUM. [Concomitant]
     Active Substance: CEFAZOLIN SODIUM
     Dosage: 2000 MG, TID, DOSAGE FORM: POWDER FOR SOLUTION INTRAMUSCULAR
     Route: 042
  4. PREGABALIN. [Concomitant]
     Active Substance: PREGABALIN
     Dosage: 150MG DAILY AT BEDTIME
     Route: 048
  5. FRAGMIN [Concomitant]
     Active Substance: DALTEPARIN SODIUM
     Dosage: 5000 UNITS DAILY, DOSAGE FORM: SOLUTION INTRAVENOUS
     Route: 058
  6. ACETAMINOPHEN. [Concomitant]
     Active Substance: ACETAMINOPHEN
     Dosage: 650 MILLIGRAM, Q4H, PRN
     Route: 048
  7. CARBAMAZEPINE. [Concomitant]
     Active Substance: CARBAMAZEPINE
     Dosage: 200MG DAILY AT BREAKFAST
     Route: 048
  8. CARBAMAZEPINE. [Concomitant]
     Active Substance: CARBAMAZEPINE
     Dosage: 400MG DAILY AT BEDTIME
     Route: 048
  9. DICLOFENAC [Concomitant]
     Active Substance: DICLOFENAC
     Dosage: 1.16 PERCENT, BID PRN
     Route: 061
  10. GABAPENTIN. [Concomitant]
     Active Substance: GABAPENTIN
     Dosage: 900 MILLIGRAM, TID
     Route: 048
  11. HYDROMORPHONE HYDROCHLORIDE. [Concomitant]
     Active Substance: HYDROMORPHONE HYDROCHLORIDE
     Dosage: 1MG-3MG Q1H PRN
     Route: 058
  12. HYDROCHLOROTHIAZIDE. [Concomitant]
     Active Substance: HYDROCHLOROTHIAZIDE
     Dosage: 12.5MG DAILY AT BREAKFAST
     Route: 048
  13. RIFAMPIN. [Concomitant]
     Active Substance: RIFAMPIN
     Dosage: 450MG DAILY AT 10:00
     Route: 048

REACTIONS (1)
  - Hypokalaemia [Recovered/Resolved]

NARRATIVE: CASE EVENT DATE: 20150623
